FAERS Safety Report 7608478-7 (Version None)
Quarter: 2011Q3

REPORT INFORMATION
  Report Type: 
  Country: None (occurrence: None)
  Receive Date: 20110714
  Receipt Date: 20110707
  Transmission Date: 20111222
  Serious: Yes (Life-Threatening, Other)
  Sender: FDA-Public Use
  Company Number: JP-BRISTOL-MYERS SQUIBB COMPANY-15892060

PATIENT
  Age: 57 Year
  Sex: Female
  Weight: 40 kg

DRUGS (9)
  1. ORENCIA [Suspect]
     Dosage: 19JAN11,02FEB,02MAR,06APR11,5TH INFUSION
     Route: 041
     Dates: start: 20110105, end: 20110406
  2. ACTONEL [Concomitant]
     Indication: OSTEOPOROSIS
  3. ACETAMINOPHEN [Concomitant]
     Indication: RHEUMATOID ARTHRITIS
  4. CYTOTEC [Concomitant]
     Indication: GASTRITIS PROPHYLAXIS
  5. PREDNISOLONE [Concomitant]
     Indication: RHEUMATOID ARTHRITIS
     Route: 048
  6. NABOAL [Concomitant]
     Indication: RHEUMATOID ARTHRITIS
  7. METHOTREXATE [Suspect]
  8. TALION [Concomitant]
     Indication: RHINITIS ALLERGIC
  9. TACROLIMUS [Concomitant]

REACTIONS (2)
  - CORONARY ARTERY STENOSIS [None]
  - ARRHYTHMIA [None]
